FAERS Safety Report 7238172-6 (Version None)
Quarter: 2011Q1

REPORT INFORMATION
  Report Type: 
  Country: None (occurrence: None)
  Receive Date: 20110121
  Receipt Date: 20110111
  Transmission Date: 20110831
  Serious: Yes (Other)
  Sender: FDA-Public Use
  Company Number: US-JNJFOC-20110104234

PATIENT
  Sex: Male
  Weight: 77.11 kg

DRUGS (1)
  1. STELARA [Suspect]
     Indication: PSORIASIS
     Route: 058

REACTIONS (7)
  - SPINAL CORD DISORDER [None]
  - FIBROMYALGIA [None]
  - PAIN [None]
  - GAIT DISTURBANCE [None]
  - DIZZINESS [None]
  - VISION BLURRED [None]
  - EYE DISORDER [None]
